FAERS Safety Report 7003363-6 (Version None)
Quarter: 2010Q3

REPORT INFORMATION
  Report Type: 
  Country: None (occurrence: None)
  Receive Date: 20100920
  Receipt Date: 20100909
  Transmission Date: 20110219
  Serious: Yes (Other)
  Sender: FDA-Public Use
  Company Number: US-PFIZER INC-2010111804

PATIENT
  Sex: Female
  Weight: 61.224 kg

DRUGS (2)
  1. GEODON [Suspect]
     Indication: SLEEP DISORDER
     Dosage: 60 MG, 1X/DAY
     Dates: start: 20020101
  2. GEODON [Suspect]
     Indication: BIPOLAR DISORDER

REACTIONS (1)
  - WITHDRAWAL SYNDROME [None]
